FAERS Safety Report 23553313 (Version 3)
Quarter: 2024Q2

REPORT INFORMATION
  Report Type: Spontaneous
  Country: US (occurrence: US)
  Receive Date: 20240222
  Receipt Date: 20240513
  Transmission Date: 20240716
  Serious: No
  Sender: FDA-Public Use
  Company Number: US-PFIZER INC-202400045330

PATIENT
  Age: 73 Year
  Sex: Female
  Weight: 63.039 kg

DRUGS (2)
  1. PAXLOVID [Suspect]
     Active Substance: NIRMATRELVIR\RITONAVIR
     Indication: COVID-19 treatment
     Dosage: UNK
     Dates: start: 20240208, end: 20240212
  2. MULTIVITAMIN N [AMINOBENZOIC ACID;ASCORBIC ACID;BETAINE HYDROCHLORIDE; [Concomitant]
     Dosage: UNK

REACTIONS (3)
  - Disease recurrence [Unknown]
  - COVID-19 [Unknown]
  - Expired product administered [Unknown]

NARRATIVE: CASE EVENT DATE: 20240201
